FAERS Safety Report 15543164 (Version 39)
Quarter: 2024Q4

REPORT INFORMATION
  Report Type: Spontaneous
  Country: CA (occurrence: CA)
  Receive Date: 20181023
  Receipt Date: 20241016
  Transmission Date: 20250115
  Serious: Yes (Disabling, Other)
  Sender: PFIZER
  Company Number: CA-PFIZER INC-2016253265

PATIENT
  Age: 65 Year
  Sex: Female

DRUGS (143)
  1. ENBREL [Suspect]
     Active Substance: ETANERCEPT
     Indication: Rheumatoid arthritis
     Dosage: 40 MILLIGRAM, QWK
     Route: 058
     Dates: start: 2013, end: 2013
  2. ENBREL [Suspect]
     Active Substance: ETANERCEPT
     Dosage: 40 MILLIGRAM, QWK
     Route: 058
  3. ENBREL [Suspect]
     Active Substance: ETANERCEPT
     Dosage: 50 MILLIGRAM, QWK
     Route: 058
     Dates: end: 2013
  4. ENBREL [Suspect]
     Active Substance: ETANERCEPT
     Dosage: 20 MILLIGRAM
     Route: 058
  5. METHOTREXATE SODIUM [Suspect]
     Active Substance: METHOTREXATE SODIUM
     Indication: Rheumatoid arthritis
     Dosage: UNK
     Route: 048
  6. METHOTREXATE SODIUM [Suspect]
     Active Substance: METHOTREXATE SODIUM
     Dosage: UNK
     Route: 065
  7. METHOTREXATE SODIUM [Suspect]
     Active Substance: METHOTREXATE SODIUM
     Dosage: 25 MILLIGRAM, 1 EVERY 24 HOURS
     Route: 048
  8. METHOTREXATE SODIUM [Suspect]
     Active Substance: METHOTREXATE SODIUM
     Dosage: 25 MILLIGRAM, 1 EVERY 1 WEEK
     Route: 048
  9. METHOTREXATE SODIUM [Suspect]
     Active Substance: METHOTREXATE SODIUM
     Dosage: 20 MILLIGRAM, 1 EVERY 1 WEEK
     Route: 048
  10. METHOTREXATE SODIUM [Suspect]
     Active Substance: METHOTREXATE SODIUM
     Dosage: 20 MILLIGRAM
     Route: 048
  11. METHOTREXATE SODIUM [Suspect]
     Active Substance: METHOTREXATE SODIUM
     Dosage: 25 MILLIGRAM
     Route: 048
  12. METHOTREXATE SODIUM [Suspect]
     Active Substance: METHOTREXATE SODIUM
     Dosage: 25 MG
     Route: 065
  13. METHOTREXATE SODIUM [Suspect]
     Active Substance: METHOTREXATE SODIUM
     Dosage: 15 MG
     Route: 065
  14. METHOTREXATE SODIUM [Suspect]
     Active Substance: METHOTREXATE SODIUM
     Dosage: UNK
     Route: 058
  15. METHOTREXATE SODIUM [Suspect]
     Active Substance: METHOTREXATE SODIUM
     Dosage: 25 MILLIGRAM, 1 EVERY 1 WEEK
     Route: 058
  16. XELJANZ [Suspect]
     Active Substance: TOFACITINIB CITRATE
     Indication: Rheumatoid arthritis
     Dosage: 5 MILLIGRAM, BID
     Route: 048
  17. XELJANZ [Suspect]
     Active Substance: TOFACITINIB CITRATE
     Dosage: UNK
     Route: 065
  18. XELJANZ [Suspect]
     Active Substance: TOFACITINIB CITRATE
     Dosage: 5 MILLIGRAM
     Route: 048
  19. XELJANZ [Suspect]
     Active Substance: TOFACITINIB CITRATE
     Dosage: 10 MILLIGRAM, 1 EVERY 24 HOURS
     Route: 048
  20. XELJANZ [Suspect]
     Active Substance: TOFACITINIB CITRATE
     Dosage: 2.0 DOSAGE FORM
  21. RITUXIMAB [Suspect]
     Active Substance: RITUXIMAB
     Indication: Rheumatoid arthritis
     Dosage: UNK
     Route: 065
  22. RITUXIMAB [Suspect]
     Active Substance: RITUXIMAB
     Dosage: UNK
     Route: 042
  23. RITUXIMAB [Suspect]
     Active Substance: RITUXIMAB
     Dosage: 1000 MILLIGRAM
     Route: 042
  24. RITUXIMAB [Suspect]
     Active Substance: RITUXIMAB
     Dosage: UNK
     Route: 042
  25. SULFASALAZINE [Suspect]
     Active Substance: SULFASALAZINE
     Indication: Rheumatoid arthritis
     Dosage: UNK
     Route: 065
  26. SULFASALAZINE [Suspect]
     Active Substance: SULFASALAZINE
     Dosage: 500 MILLIGRAM
     Route: 048
  27. SULFASALAZINE [Suspect]
     Active Substance: SULFASALAZINE
     Dosage: 500 MILLIGRAM, 1 EVERY 24 HOURS
     Route: 048
  28. ACTEMRA [Suspect]
     Active Substance: TOCILIZUMAB
     Indication: Rheumatoid arthritis
     Dosage: 8.0 MG/KG
     Route: 042
  29. ACTEMRA [Suspect]
     Active Substance: TOCILIZUMAB
     Dosage: UNK
     Route: 058
  30. ACTEMRA [Suspect]
     Active Substance: TOCILIZUMAB
     Dosage: 680 MILLIGRAM, QMO
     Route: 065
  31. ACTEMRA [Suspect]
     Active Substance: TOCILIZUMAB
     Dosage: 360 MILLIGRAM, QMO
     Route: 065
  32. ACTEMRA [Suspect]
     Active Substance: TOCILIZUMAB
     Dosage: 380 MILLIGRAM
     Route: 065
  33. ACTEMRA [Suspect]
     Active Substance: TOCILIZUMAB
     Dosage: 360 MILLIGRAM, QMO
     Route: 065
  34. ACTEMRA [Suspect]
     Active Substance: TOCILIZUMAB
     Dosage: UNK
     Route: 065
  35. ACTEMRA [Suspect]
     Active Substance: TOCILIZUMAB
     Dosage: 162 MILLIGRAM
     Route: 058
  36. HUMIRA [Suspect]
     Active Substance: ADALIMUMAB
     Indication: Rheumatoid arthritis
     Dosage: 40 MILLIGRAM, QWK
     Route: 058
     Dates: start: 2010
  37. HUMIRA [Suspect]
     Active Substance: ADALIMUMAB
     Dosage: 40 MILLIGRAM, QWK
     Route: 058
  38. HUMIRA [Suspect]
     Active Substance: ADALIMUMAB
     Dosage: 40 MILLIGRAM
     Route: 058
  39. HUMIRA [Suspect]
     Active Substance: ADALIMUMAB
     Dosage: UNK
     Route: 065
  40. HUMIRA [Suspect]
     Active Substance: ADALIMUMAB
     Dosage: UNK
     Route: 058
  41. ORENCIA [Suspect]
     Active Substance: ABATACEPT
     Indication: Rheumatoid arthritis
     Dosage: 0.75 MILLIGRAM, QMO
     Route: 042
  42. ORENCIA [Suspect]
     Active Substance: ABATACEPT
     Dosage: 25 MILLIGRAM, QWK
     Route: 042
  43. ORENCIA [Suspect]
     Active Substance: ABATACEPT
     Dosage: UNK
     Route: 065
  44. ORENCIA [Suspect]
     Active Substance: ABATACEPT
     Dosage: 1000 MILLIGRAM
     Route: 042
  45. ORENCIA [Suspect]
     Active Substance: ABATACEPT
     Dosage: 125 MILLIGRAM, QWK
     Route: 042
  46. ORENCIA [Suspect]
     Active Substance: ABATACEPT
     Dosage: UNK
     Route: 040
  47. ORENCIA [Suspect]
     Active Substance: ABATACEPT
     Dosage: 75 MILLIGRAM, 1 EVERY 1 MONTH
     Route: 065
  48. ORENCIA [Suspect]
     Active Substance: ABATACEPT
     Dosage: 125 MILLIGRAM
     Route: 058
  49. REMICADE [Suspect]
     Active Substance: INFLIXIMAB
     Indication: Rheumatoid arthritis
     Dosage: UNK
     Route: 042
  50. REMICADE [Suspect]
     Active Substance: INFLIXIMAB
     Indication: Crohn^s disease
     Dosage: UNK
     Route: 042
  51. REMICADE [Suspect]
     Active Substance: INFLIXIMAB
     Dosage: UNK
     Route: 042
  52. REMICADE [Suspect]
     Active Substance: INFLIXIMAB
     Dosage: 5 MICROGRAM/KILOGRAM
     Route: 042
  53. REMICADE [Suspect]
     Active Substance: INFLIXIMAB
     Dosage: 5 MG/KG
     Route: 042
  54. REMICADE [Suspect]
     Active Substance: INFLIXIMAB
     Dosage: 300 MILLIGRAM
     Route: 042
  55. RITUXAN [Suspect]
     Active Substance: RITUXIMAB
     Indication: Rheumatoid arthritis
     Dosage: UNK
     Route: 042
     Dates: start: 2015, end: 20160216
  56. RITUXAN [Suspect]
     Active Substance: RITUXIMAB
     Dosage: UNK
     Route: 065
  57. PLAQUENIL [Suspect]
     Active Substance: HYDROXYCHLOROQUINE SULFATE
     Indication: Rheumatoid arthritis
     Dosage: UNK
     Route: 065
     Dates: start: 2007
  58. PLAQUENIL [Suspect]
     Active Substance: HYDROXYCHLOROQUINE SULFATE
     Dosage: UNK
     Route: 048
  59. LEFLUNOMIDE [Suspect]
     Active Substance: LEFLUNOMIDE
     Indication: Rheumatoid arthritis
     Dosage: UNK
     Route: 048
  60. LEFLUNOMIDE [Suspect]
     Active Substance: LEFLUNOMIDE
     Dosage: 10 MILLIGRAM, 1 EVERY 24 HRS
     Route: 065
  61. LEFLUNOMIDE [Suspect]
     Active Substance: LEFLUNOMIDE
     Dosage: UNK
     Route: 065
  62. LEFLUNOMIDE [Suspect]
     Active Substance: LEFLUNOMIDE
     Dosage: 20 MILLIGRAM, QWK
     Route: 048
  63. LEFLUNOMIDE [Suspect]
     Active Substance: LEFLUNOMIDE
     Dosage: 10 MILLIGRAM, QD
     Route: 048
  64. LEFLUNOMIDE [Suspect]
     Active Substance: LEFLUNOMIDE
     Dosage: 10 MILLIGRAM, 1 EVERY 24 HRS
     Route: 048
  65. LEFLUNOMIDE [Suspect]
     Active Substance: LEFLUNOMIDE
     Dosage: 20 MILLIGRAM, 1 EVERY 24 HRS
     Route: 065
  66. AZATHIOPRINE [Suspect]
     Active Substance: AZATHIOPRINE
     Indication: Rheumatoid arthritis
     Dosage: UNK
     Route: 065
  67. AZATHIOPRINE [Suspect]
     Active Substance: AZATHIOPRINE
     Dosage: UNK
  68. HYDROXYCHLOROQUINE [Suspect]
     Active Substance: HYDROXYCHLOROQUINE
     Indication: Rheumatoid arthritis
     Dosage: 200 MILLIGRAM
     Route: 065
  69. HYDROXYCHLOROQUINE [Suspect]
     Active Substance: HYDROXYCHLOROQUINE
     Dosage: UNK
     Route: 048
  70. HYDROXYCHLOROQUINE [Suspect]
     Active Substance: HYDROXYCHLOROQUINE
     Dosage: UNK
     Route: 058
  71. HYDROXYCHLOROQUINE [Suspect]
     Active Substance: HYDROXYCHLOROQUINE
     Dosage: 400 MILLIGRAM, 1 EVERY 24 HRS
     Route: 065
  72. HYDROXYCHLOROQUINE [Suspect]
     Active Substance: HYDROXYCHLOROQUINE
     Dosage: 200 MILLIGRAM, 2 EVERY 1 DAYS
     Route: 065
  73. HYDROXYCHLOROQUINE [Suspect]
     Active Substance: HYDROXYCHLOROQUINE
     Dosage: 200 MILLIGRAM, 2 EVERY 1 WEK
     Route: 065
  74. HYDROXYCHLOROQUINE [Suspect]
     Active Substance: HYDROXYCHLOROQUINE
     Dosage: 400 MILLIGRAM, 1 EVERY H1 WEEKS
     Route: 065
  75. CHLOROQUINE DIPHOSPHATE [Suspect]
     Active Substance: CHLOROQUINE PHOSPHATE
     Indication: Rheumatoid arthritis
     Dosage: UNK
  76. CHLOROQUINE DIPHOSPHATE [Suspect]
     Active Substance: CHLOROQUINE PHOSPHATE
     Dosage: UNK
  77. GOLD [Suspect]
     Active Substance: GOLD
     Dosage: UNK
  78. ARAVA [Suspect]
     Active Substance: LEFLUNOMIDE
     Indication: Rheumatoid arthritis
     Dosage: UNK
     Route: 065
  79. ARAVA [Suspect]
     Active Substance: LEFLUNOMIDE
     Dosage: UNK
     Route: 065
  80. ARAVA [Suspect]
     Active Substance: LEFLUNOMIDE
     Dosage: 10 MILLIGRAM
     Route: 048
  81. ARAVA [Suspect]
     Active Substance: LEFLUNOMIDE
     Dosage: 20 MILLIGRAM, 1 EVERY 24 HOURS
     Route: 048
  82. BUDESONIDE [Suspect]
     Active Substance: BUDESONIDE
     Dosage: UNK
     Route: 065
  83. MAGNESIUM OXIDE [Suspect]
     Active Substance: MAGNESIUM OXIDE
     Dosage: UNK
     Route: 065
  84. CODEINE [Suspect]
     Active Substance: CODEINE
     Indication: Rheumatoid arthritis
     Dosage: UNK
     Route: 065
  85. CODEINE [Suspect]
     Active Substance: CODEINE
     Dosage: UNK
  86. MYOCHRYSINE [Suspect]
     Active Substance: GOLD SODIUM THIOMALATE
     Indication: Rheumatoid arthritis
     Dosage: UNK
     Route: 030
  87. MYOCHRYSINE [Suspect]
     Active Substance: GOLD SODIUM THIOMALATE
     Dosage: 25 MILLIGRAM, 1 EVERY 1 WEEK
     Route: 030
  88. TOCILIZUMAB [Suspect]
     Active Substance: TOCILIZUMAB
     Indication: Rheumatoid arthritis
     Dosage: UNK
     Route: 065
  89. TOCILIZUMAB [Suspect]
     Active Substance: TOCILIZUMAB
     Dosage: 680 MILLIGRAM, QMO
     Route: 065
  90. FOSAMAX [Suspect]
     Active Substance: ALENDRONATE SODIUM
     Indication: Rheumatoid arthritis
     Dosage: UNK
     Route: 065
  91. NEORAL [Suspect]
     Active Substance: CYCLOSPORINE
     Indication: Rheumatoid arthritis
     Dosage: UNK
  92. SIMPONI [Suspect]
     Active Substance: GOLIMUMAB
     Indication: Rheumatoid arthritis
     Dosage: 3.0 UG/KG
     Route: 058
  93. DOXYCYCLINE HYCLATE [Suspect]
     Active Substance: DOXYCYCLINE HYCLATE
     Dosage: 50 MG
  94. COSENTYX [Suspect]
     Active Substance: SECUKINUMAB
     Indication: Rheumatoid arthritis
     Dosage: UNK
     Route: 065
  95. TALTZ [Suspect]
     Active Substance: IXEKIZUMAB
     Dosage: UNK
     Route: 065
  96. ALENDRONATE SODIUM [Concomitant]
     Active Substance: ALENDRONATE SODIUM
     Dosage: UNK
  97. AMLODIPINE [Concomitant]
     Active Substance: AMLODIPINE BESYLATE
     Dosage: UNK
  98. LYRICA [Concomitant]
     Active Substance: PREGABALIN
     Dosage: UNK
  99. PREDNISONE [Concomitant]
     Active Substance: PREDNISONE
     Indication: Rheumatoid arthritis
     Dosage: 5 MILLIGRAM, QD (EVERY 24 HOURS)
     Route: 065
     Dates: start: 20160503
  100. PREDNISONE [Concomitant]
     Active Substance: PREDNISONE
     Dosage: 10 MILLIGRAM, BID
     Route: 065
     Dates: start: 20160511
  101. PREDNISONE [Concomitant]
     Active Substance: PREDNISONE
     Dosage: 8 MILLIGRAM, 1 EVERY 24 HRS
  102. PREDNISONE [Concomitant]
     Active Substance: PREDNISONE
     Dosage: 10 MILLIGRAM, 2 EVERY ONE DAY
  103. PREDNISONE [Concomitant]
     Active Substance: PREDNISONE
     Dosage: 5 MILLIGRAM, 1 EVERY 24 HRS
     Route: 016
  104. PREDNISONE [Concomitant]
     Active Substance: PREDNISONE
     Dosage: UNK
     Route: 065
  105. PREDNISONE [Concomitant]
     Active Substance: PREDNISONE
     Dosage: 8.5 MILLIGRAM, 1 EVERY 24 HRS
  106. PREDNISONE [Concomitant]
     Active Substance: PREDNISONE
     Dosage: 10 MILLIGRAM, 1 EVERY 24 HOURS
     Route: 048
  107. ATENOLOL [Concomitant]
     Active Substance: ATENOLOL
     Dosage: UNK
     Route: 065
  108. ATENOLOL [Concomitant]
     Active Substance: ATENOLOL
     Dosage: UNK
     Route: 048
  109. CYANOCOBALAMIN [Concomitant]
     Active Substance: CYANOCOBALAMIN
     Dosage: UNK
     Route: 065
  110. ERGOCALCIFEROL [Concomitant]
     Active Substance: ERGOCALCIFEROL
     Dosage: UNK
  111. HYDROCHLOROTHIAZIDE [Concomitant]
     Active Substance: HYDROCHLOROTHIAZIDE
     Dosage: UNK
     Route: 065
  112. IRON [Concomitant]
     Active Substance: IRON
     Dosage: UNK
     Route: 065
  113. PRAMIPEXOLE [Concomitant]
     Active Substance: PRAMIPEXOLE\PRAMIPEXOLE DIHYDROCHLORIDE
     Dosage: UNK
  114. PROPRANOLOL [Concomitant]
     Active Substance: PROPRANOLOL HYDROCHLORIDE
     Dosage: UNK
  115. RAMIPRIL [Concomitant]
     Active Substance: RAMIPRIL
     Dosage: UNK
  116. SERTRALINE [Concomitant]
     Active Substance: SERTRALINE HYDROCHLORIDE
     Dosage: UNK
     Route: 058
  117. TRAZODONE [Concomitant]
     Active Substance: TRAZODONE HYDROCHLORIDE
     Indication: Rheumatoid arthritis
     Dosage: UNK
  118. ASPIRIN [Concomitant]
     Active Substance: ASPIRIN
     Dosage: UNK
  119. ALPRAZOLAM [Concomitant]
     Active Substance: ALPRAZOLAM
     Dosage: UNK
  120. BISOPROLOL [Concomitant]
     Active Substance: BISOPROLOL\BISOPROLOL FUMARATE
     Dosage: UNK
  121. CELEBREX [Concomitant]
     Active Substance: CELECOXIB
     Dosage: UNK
  122. FOLIC ACID [Concomitant]
     Active Substance: FOLIC ACID
     Dosage: UNK
  123. FOLIC ACID [Concomitant]
     Active Substance: FOLIC ACID
     Dosage: 5 MILLIGRAM
     Route: 048
  124. IRON SUCROSE [Concomitant]
     Active Substance: IRON SUCROSE
     Dosage: UNK
  125. METFORMIN HYDROCHLORIDE [Concomitant]
     Active Substance: METFORMIN HYDROCHLORIDE
     Dosage: UNK
  126. MORPHINE SULFATE [Concomitant]
     Active Substance: MORPHINE SULFATE
     Dosage: UNK
  127. PANTOPRAZOLE SODIUM [Concomitant]
     Active Substance: PANTOPRAZOLE SODIUM
     Dosage: UNK
  128. PANTOPRAZOLE SODIUM [Concomitant]
     Active Substance: PANTOPRAZOLE SODIUM
     Dosage: UNK
     Route: 048
  129. PAROXETINE HYDROCHLORIDE [Concomitant]
     Active Substance: PAROXETINE HYDROCHLORIDE
     Dosage: UNK
  130. RISEDRONATE SODIUM [Concomitant]
     Active Substance: RISEDRONATE SODIUM
     Dosage: UNK
     Route: 065
  131. RISEDRONATE SODIUM [Concomitant]
     Active Substance: RISEDRONATE SODIUM
     Dosage: 35 MILLIGRAM
     Route: 048
  132. RISEDRONATE SODIUM [Concomitant]
     Active Substance: RISEDRONATE SODIUM
     Dosage: 35 MILLIGRAM, 1 EVERY 1 WEEK
     Route: 048
  133. SIMVASTATIN [Concomitant]
     Active Substance: SIMVASTATIN
     Dosage: UNK
  134. TELMISARTAN [Concomitant]
     Active Substance: TELMISARTAN
     Dosage: UNK
  135. AMLODIPINE BESYLATE [Concomitant]
     Active Substance: AMLODIPINE BESYLATE
     Dosage: UNK
     Route: 065
  136. BISOPROLOL FUMARATE AND HYDROCHLOROTHIAZIDE [Concomitant]
     Active Substance: BISOPROLOL FUMARATE\HYDROCHLOROTHIAZIDE
     Dosage: UNK
  137. ESOMEPRAZOLE [Concomitant]
     Active Substance: ESOMEPRAZOLE
     Indication: Gastrointestinal disorder
     Dosage: UNK
  138. PRAMIPEXOLE DIHYDROCHLORIDE [Concomitant]
     Active Substance: PRAMIPEXOLE DIHYDROCHLORIDE
     Dosage: UNK
  139. SACCHARATED IRON OXIDE [Concomitant]
     Active Substance: IRON SUCROSE
     Dosage: UNK
  140. SERTRALINE HYDROCHLORIDE [Concomitant]
     Active Substance: SERTRALINE HYDROCHLORIDE
     Dosage: UNK
     Route: 065
  141. ACETAMINOPHEN [Concomitant]
     Active Substance: ACETAMINOPHEN
     Dosage: UNK
  142. CIMZIA [Concomitant]
     Active Substance: CERTOLIZUMAB PEGOL
     Dosage: 200 MG
     Route: 058
  143. WELLBUTRIN [Concomitant]
     Active Substance: BUPROPION HYDROCHLORIDE

REACTIONS (31)
  - Pneumonia [Not Recovered/Not Resolved]
  - Drug ineffective [Unknown]
  - Hepatic enzyme increased [Not Recovered/Not Resolved]
  - Rheumatoid arthritis [Not Recovered/Not Resolved]
  - Arthritis [Not Recovered/Not Resolved]
  - Arthropathy [Not Recovered/Not Resolved]
  - Abdominal pain [Not Recovered/Not Resolved]
  - Blood parathyroid hormone decreased [Not Recovered/Not Resolved]
  - Drug hypersensitivity [Not Recovered/Not Resolved]
  - Drug intolerance [Not Recovered/Not Resolved]
  - Hypercalcaemia [Not Recovered/Not Resolved]
  - Infusion related reaction [Not Recovered/Not Resolved]
  - Insomnia [Not Recovered/Not Resolved]
  - Panniculitis [Not Recovered/Not Resolved]
  - Red blood cell sedimentation rate increased [Not Recovered/Not Resolved]
  - Rheumatoid nodule [Not Recovered/Not Resolved]
  - Skin ulcer [Not Recovered/Not Resolved]
  - Ulcer [Not Recovered/Not Resolved]
  - Basal cell carcinoma [Not Recovered/Not Resolved]
  - Pulmonary fibrosis [Not Recovered/Not Resolved]
  - Hepatitis [Not Recovered/Not Resolved]
  - Alopecia [Not Recovered/Not Resolved]
  - Deafness [Not Recovered/Not Resolved]
  - Vomiting [Not Recovered/Not Resolved]
  - Fatigue [Not Recovered/Not Resolved]
  - Nausea [Not Recovered/Not Resolved]
  - Off label use [Not Recovered/Not Resolved]
  - Product use in unapproved indication [Not Recovered/Not Resolved]
  - Product use issue [Not Recovered/Not Resolved]
  - Prescribed underdose [Not Recovered/Not Resolved]
  - Contraindicated product administered [Not Recovered/Not Resolved]
